FAERS Safety Report 5647124-9 (Version None)
Quarter: 2008Q1

REPORT INFORMATION
  Report Type: 
  Country: None (occurrence: None)
  Receive Date: 20080228
  Receipt Date: 20080228
  Transmission Date: 20080703
  Serious: Yes (Other)
  Sender: FDA-Public Use
  Company Number: None

PATIENT
  Sex: Female
  Weight: 46.2669 kg

DRUGS (4)
  1. VICOPROFEN [Suspect]
     Indication: ARTHRITIS
     Dosage: 1 TABLET 5 TIMES PER DAY PO
     Route: 048
     Dates: start: 20071228, end: 20080227
  2. VICOPROFEN [Suspect]
     Indication: JOINT EFFUSION
     Dosage: 1 TABLET 5 TIMES PER DAY PO
     Route: 048
     Dates: start: 20071228, end: 20080227
  3. VICOPROFEN [Suspect]
     Indication: OSTEOPOROSIS
     Dosage: 1 TABLET 5 TIMES PER DAY PO
     Route: 048
     Dates: start: 20071228, end: 20080227
  4. VICOPROFEN [Suspect]
     Indication: PAIN
     Dosage: 1 TABLET 5 TIMES PER DAY PO
     Route: 048
     Dates: start: 20071228, end: 20080227

REACTIONS (3)
  - GLOSSODYNIA [None]
  - PHARMACEUTICAL PRODUCT COMPLAINT [None]
  - TONGUE BLISTERING [None]
